FAERS Safety Report 22051174 (Version 4)
Quarter: 2023Q2

REPORT INFORMATION
  Report Type: Report from Study
  Country: US (occurrence: US)
  Receive Date: 20230301
  Receipt Date: 20230424
  Transmission Date: 20230722
  Serious: Yes (Hospitalization, Other)
  Sender: FDA-Public Use
  Company Number: US-BAUSCH-BL-2022-015752

PATIENT
  Age: 81 Year
  Sex: Male

DRUGS (4)
  1. XIFAXAN [Suspect]
     Active Substance: RIFAXIMIN
     Indication: Hepatic cirrhosis
     Route: 048
     Dates: start: 2021, end: 2022
  2. XIFAXAN [Suspect]
     Active Substance: RIFAXIMIN
     Indication: Ammonia increased
     Route: 048
     Dates: end: 202301
  3. XIFAXAN [Suspect]
     Active Substance: RIFAXIMIN
     Indication: Hepatic encephalopathy
  4. LACTULOSE [Concomitant]
     Active Substance: LACTULOSE
     Indication: Product used for unknown indication
     Dates: end: 2022

REACTIONS (10)
  - Depressed level of consciousness [Unknown]
  - Aortic aneurysm [Unknown]
  - Ammonia increased [Unknown]
  - Condition aggravated [Unknown]
  - Drooling [Unknown]
  - Lid sulcus deepened [Unknown]
  - Lacrimation increased [Unknown]
  - Hepatic encephalopathy [Unknown]
  - Skin exfoliation [Unknown]
  - Product use issue [Unknown]

NARRATIVE: CASE EVENT DATE: 20220101
